FAERS Safety Report 18242038 (Version 1)
Quarter: 2020Q3

REPORT INFORMATION
  Report Type: Spontaneous
  Country: DE (occurrence: DE)
  Receive Date: 20200908
  Receipt Date: 20200908
  Transmission Date: 20201103
  Serious: Yes (Other)
  Sender: FDA-Public Use
  Company Number: DE-GLAXOSMITHKLINE-DE2020EME176332

PATIENT
  Sex: Male

DRUGS (1)
  1. ELEBRATO ELLIPTA [Suspect]
     Active Substance: FLUTICASONE FUROATE\UMECLIDINIUM BROMIDE\VILANTEROL TRIFENATATE
     Indication: CHRONIC OBSTRUCTIVE PULMONARY DISEASE
     Dosage: UNK, 1D
     Dates: start: 2017, end: 20200901

REACTIONS (3)
  - Weight decreased [Unknown]
  - Blindness [Unknown]
  - Visual impairment [Unknown]
